FAERS Safety Report 5207479-6 (Version None)
Quarter: 2006Q4

REPORT INFORMATION
  Report Type: 
  Country: None (occurrence: None)
  Receive Date: 20061027
  Receipt Date: 20060731
  Transmission Date: 20070319
  Serious: No
  Sender: FDA-Public Use
  Company Number: 2006CT000471

PATIENT
  Age: 49 Year
  Sex: Female
  Weight: 56.6996 kg

DRUGS (21)
  1. VENTAVIS [Suspect]
     Indication: PULMONARY HYPERTENSION
     Dosage: 5 UG;6 TO 9X/DAY;INH
     Route: 055
     Dates: start: 20050901
  2. LISINOPRIL [Concomitant]
  3. PARACETAMOL/HYDROCODONE [Concomitant]
  4. BITARTRATE [Concomitant]
  5. WARFARIN SODIUM [Concomitant]
  6. TRACLEER [Concomitant]
  7. NEXIUM [Concomitant]
  8. NASONEX [Concomitant]
  9. CLOTRIMAZOLE [Concomitant]
  10. LAC-HYDRIN [Concomitant]
  11. ATROVENT [Concomitant]
  12. ALBUTEROL [Concomitant]
  13. FOLGARD RX [Concomitant]
  14. AMLODIPINE [Concomitant]
  15. HEMOCYTE PLUS [Concomitant]
  16. CALCIUM CARBONATE [Concomitant]
  17. PROMETHAZINE HCL [Concomitant]
  18. EVOXAC [Concomitant]
  19. POTASSIUM CHLORIDE [Concomitant]
  20. ARAVA [Concomitant]
  21. PREDNISONE [Concomitant]

REACTIONS (4)
  - COUGH [None]
  - DENTAL CARIES [None]
  - DRY MOUTH [None]
  - TOOTH DISCOLOURATION [None]
